FAERS Safety Report 10385905 (Version 1)
Quarter: 2014Q3

REPORT INFORMATION
  Report Type: Spontaneous
  Country: US (occurrence: US)
  Receive Date: 20140814
  Receipt Date: 20140814
  Transmission Date: 20150326
  Serious: No
  Sender: FDA-Public Use
  Company Number: US-GALDERMA-US13003694

PATIENT
  Sex: Female

DRUGS (4)
  1. DIFFERIN [Suspect]
     Active Substance: ADAPALENE
     Indication: ACNE
     Route: 061
     Dates: start: 20131028
  2. CETAPHIL [Concomitant]
     Active Substance: AVOBENZONE\OCTOCRYLENE\TRICLOSAN
     Indication: DRY SKIN PROPHYLAXIS
     Route: 061
  3. CETAPHIL DAILY FACIAL CLEANSER [Suspect]
     Active Substance: COSMETICS
     Indication: THERAPEUTIC SKIN CARE TOPICAL
     Route: 061
     Dates: start: 201309
  4. NEUTROGEN VISIBLY EVEN MOISTURIZER WITH SPF [Concomitant]
     Indication: DRY SKIN PROPHYLAXIS
     Route: 061
     Dates: start: 2004, end: 20131110

REACTIONS (1)
  - Dry skin [Recovering/Resolving]
